FAERS Safety Report 10203018 (Version 2)
Quarter: 2014Q2

REPORT INFORMATION
  Report Type: Report from Study
  Country: DK (occurrence: DK)
  Receive Date: 20140528
  Receipt Date: 20140528
  Transmission Date: 20141212
  Serious: Yes (Hospitalization)
  Sender: FDA-Public Use
  Company Number: DK-BRISTOL-MYERS SQUIBB COMPANY-20265880

PATIENT
  Age: 67 Year
  Sex: Male
  Weight: 85.8 kg

DRUGS (6)
  1. BLINDED: NIVOLUMAB [Suspect]
     Indication: METASTATIC MALIGNANT MELANOMA
     Dosage: INTERRUPTED:13FEB14
     Route: 042
     Dates: start: 20131220
  2. IPILIMUMAB [Suspect]
     Indication: METASTATIC MALIGNANT MELANOMA
     Dosage: INTERRUPTED:13FEB14
     Route: 042
     Dates: start: 20131220
  3. PLACEBO [Suspect]
     Indication: METASTATIC MALIGNANT MELANOMA
     Dosage: INTERRUPTED:13FEB14
     Route: 042
     Dates: start: 20131220
  4. PREDNISONE [Concomitant]
     Dosage: 19FEB-21FEB14?22FEB14-25FEB14?26FEB14-01MAR14?02MAR14-CONT
     Route: 048
     Dates: start: 20050101, end: 20140218
  5. ALENDRONATE [Concomitant]
  6. MULTIVITAMINS + MINERALS [Concomitant]
     Dates: start: 20131129

REACTIONS (1)
  - Fibromyalgia [Recovered/Resolved]
